FAERS Safety Report 16120024 (Version 1)
Quarter: 2019Q1

REPORT INFORMATION
  Report Type: Spontaneous
  Country: IN (occurrence: IN)
  Receive Date: 20190326
  Receipt Date: 20190326
  Transmission Date: 20190418
  Serious: Yes (Other)
  Sender: FDA-Public Use
  Company Number: IN-PFIZER INC-2018090321

PATIENT
  Age: 62 Year
  Sex: Female

DRUGS (6)
  1. SUTENT [Suspect]
     Active Substance: SUNITINIB MALATE
     Dosage: 37.5 MG, CYCLIC (ONCE A DAY 1 HOUR BEFORE OR 2 HOUR AFTER FOOD, 2 WEEKS ON AND 1 WEEK OFF)
  2. SUTENT [Suspect]
     Active Substance: SUNITINIB MALATE
     Dosage: 50 MG, CYCLIC (2 WEEKS ON AND ONE WEEK OFF)
     Route: 048
  3. SUTENT [Suspect]
     Active Substance: SUNITINIB MALATE
     Dosage: 50 MG, UNK
  4. SUTENT [Suspect]
     Active Substance: SUNITINIB MALATE
     Indication: METASTATIC RENAL CELL CARCINOMA
     Dosage: 37.5 MG, 1X/DAY
     Route: 048
     Dates: start: 20180224
  5. SUTENT [Suspect]
     Active Substance: SUNITINIB MALATE
     Dosage: 37.5 MG, CYCLIC (ONE WEEK ON AND ONE WEEK OFF)
     Route: 048
  6. ZOLDRIA [Suspect]
     Active Substance: ZOLEDRONIC ACID
     Dosage: UNK
     Dates: start: 20180307

REACTIONS (12)
  - Decreased appetite [Unknown]
  - Arthralgia [Unknown]
  - Spinal compression fracture [Unknown]
  - Lymphadenopathy [Unknown]
  - Asthenia [Unknown]
  - Osteolysis [Unknown]
  - Palmar-plantar erythrodysaesthesia syndrome [Unknown]
  - Blood creatinine increased [Unknown]
  - Back pain [Recovering/Resolving]
  - Blood pressure increased [Unknown]
  - Diarrhoea [Unknown]
  - Pallor [Unknown]
